FAERS Safety Report 10005484 (Version 2)
Quarter: 2014Q1

REPORT INFORMATION
  Report Type: Spontaneous
  Country: CA (occurrence: CA)
  Receive Date: 20140313
  Receipt Date: 20140313
  Transmission Date: 20141002
  Serious: Yes (Hospitalization)
  Sender: FDA-Public Use
  Company Number: CA-RANBAXY-2011US-48713

PATIENT
  Age: 59 Year
  Sex: Female

DRUGS (3)
  1. TOPIRAMATE [Suspect]
     Indication: STATUS EPILEPTICUS
     Dosage: 100 MG, BID
     Route: 065
     Dates: start: 20100616
  2. LEVETIRACETAM [Concomitant]
     Indication: STATUS EPILEPTICUS
     Dosage: 500 MG, BID
     Route: 065
     Dates: start: 20100616
  3. PHENYTOIN [Concomitant]
     Indication: CONVULSION
     Dosage: 400 MG, DAILY
     Route: 065

REACTIONS (2)
  - Weight decreased [Unknown]
  - Glycosylated haemoglobin decreased [Unknown]
